FAERS Safety Report 5212532-7 (Version None)
Quarter: 2006Q4

REPORT INFORMATION
  Report Type: 
  Country: None (occurrence: None)
  Receive Date: 20061130
  Receipt Date: 20060606
  Transmission Date: 20070319
  Serious: Yes (Other)
  Sender: FDA-Public Use
  Company Number: WAES 0606USA00961

PATIENT
  Age: 71 Year
  Sex: Female

DRUGS (1)
  1. FOSAMAX [Suspect]
     Indication: OSTEOPOROSIS
     Dosage: 70 MG/WKY/PO
     Route: 048
     Dates: start: 20030101, end: 20060506

REACTIONS (7)
  - FATIGUE [None]
  - IMPAIRED HEALING [None]
  - LOOSE TOOTH [None]
  - OSTEOMYELITIS [None]
  - PERIODONTAL DISEASE [None]
  - TOOTH ABSCESS [None]
  - WEIGHT DECREASED [None]
